FAERS Safety Report 6294508-4 (Version None)
Quarter: 2009Q3

REPORT INFORMATION
  Report Type: 
  Country: None (occurrence: None)
  Receive Date: 20090803
  Receipt Date: 20090730
  Transmission Date: 20100115
  Serious: Yes (Life-Threatening, Hospitalization, Other)
  Sender: FDA-Public Use
  Company Number: GB-ASTRAZENECA-2009SE03823

PATIENT
  Age: 639 Month
  Sex: Female

DRUGS (4)
  1. ZOLADEX [Suspect]
     Indication: MENORRHAGIA
     Route: 058
     Dates: start: 20090321, end: 20090601
  2. LISINOPRIL [Concomitant]
     Indication: BLOOD PRESSURE INCREASED
     Route: 048
     Dates: start: 20040101
  3. CODEINE SUL TAB [Concomitant]
  4. BENDROFLUMETHIAZIDE [Concomitant]
     Indication: BLOOD PRESSURE INCREASED
     Route: 048

REACTIONS (8)
  - ARTHRALGIA [None]
  - DIZZINESS [None]
  - HEADACHE [None]
  - HOT FLUSH [None]
  - HYPERTENSION [None]
  - INTRACRANIAL ANEURYSM [None]
  - URINE OUTPUT INCREASED [None]
  - WEIGHT DECREASED [None]
